FAERS Safety Report 6109315-2 (Version None)
Quarter: 2009Q1

REPORT INFORMATION
  Report Type: 
  Country: None (occurrence: None)
  Receive Date: 20090309
  Receipt Date: 20090309
  Transmission Date: 20090719
  Serious: Yes (Hospitalization)
  Sender: FDA-Public Use
  Company Number: None

PATIENT
  Age: 62 Year
  Sex: Male
  Weight: 84.8 kg

DRUGS (1)
  1. SIMVASTATIN [Suspect]
     Indication: HYPERLIPIDAEMIA
     Dosage: 20 MG HS PO
     Route: 048
     Dates: start: 20070117, end: 20090211

REACTIONS (14)
  - CEREBRAL HAEMORRHAGE [None]
  - CHILLS [None]
  - DECREASED APPETITE [None]
  - DUODENAL ULCER [None]
  - GASTRITIS [None]
  - HAEMATOCHEZIA [None]
  - HEPATIC ENZYME INCREASED [None]
  - HYPOTENSION [None]
  - HYPOVOLAEMIA [None]
  - LETHARGY [None]
  - PANCREATITIS [None]
  - RENAL FAILURE ACUTE [None]
  - RHABDOMYOLYSIS [None]
  - UPPER GASTROINTESTINAL HAEMORRHAGE [None]
